FAERS Safety Report 5389903-1 (Version None)
Quarter: 2007Q3

REPORT INFORMATION
  Report Type: 
  Country: None (occurrence: None)
  Receive Date: 20070718
  Receipt Date: 20070712
  Transmission Date: 20080115
  Serious: Yes (Other)
  Sender: FDA-Public Use
  Company Number: US-JNJFOC-20070703035

PATIENT
  Sex: Male
  Weight: 81.65 kg

DRUGS (7)
  1. EXTRA STRENGTH TYLENOL [Suspect]
  2. EXTRA STRENGTH TYLENOL [Suspect]
     Indication: PAIN
     Dosage: 1000-2000MG DAILY
  3. NORVASC [Concomitant]
     Indication: BLOOD PRESSURE
  4. ATENOLOL [Concomitant]
     Indication: BLOOD PRESSURE
  5. WELLBUTRIN [Concomitant]
     Indication: DEPRESSION
  6. NEXIUM [Concomitant]
     Indication: GASTRIC DISORDER
  7. DARVOCET 100/650 [Concomitant]
     Indication: PAIN
     Dosage: AS NEEDED

REACTIONS (1)
  - NEUROPATHY PERIPHERAL [None]
